FAERS Safety Report 6711010-3 (Version None)
Quarter: 2010Q2

REPORT INFORMATION
  Report Type: 
  Country: None (occurrence: None)
  Receive Date: 20100505
  Receipt Date: 20100423
  Transmission Date: 20101027
  Serious: Yes (Other)
  Sender: FDA-Public Use
  Company Number: FR-BAYER-201021752GPV

PATIENT
  Sex: Female

DRUGS (2)
  1. MIRENA [Suspect]
     Indication: DRUG USE FOR UNKNOWN INDICATION
     Route: 015
     Dates: start: 20010501
  2. MIRENA [Suspect]
     Dosage: AT THE TIME OF THE EXPIRE DATE OF FIRST MIRENA SECOND MIRENA WAS INSERTED
     Route: 015

REACTIONS (3)
  - DEPRESSION [None]
  - MENINGIOMA [None]
  - PSYCHIATRIC SYMPTOM [None]
